FAERS Safety Report 10183601 (Version 1)
Quarter: 2014Q2

REPORT INFORMATION
  Report Type: Spontaneous
  Country: CN (occurrence: CN)
  Receive Date: 20140520
  Receipt Date: 20140520
  Transmission Date: 20141212
  Serious: Yes (Other)
  Sender: FDA-Public Use
  Company Number: CN-GILEAD-2014-0102903

PATIENT
  Age: 40 Year
  Sex: Male

DRUGS (3)
  1. ADEFOVIR DIPIVOXIL [Suspect]
     Indication: CHRONIC HEPATITIS B
     Dosage: 10 MG, QD
     Route: 065
  2. ADEFOVIR DIPIVOXIL [Suspect]
     Dosage: 50 MG, QD
     Route: 065
  3. LAMIVUDINE [Suspect]
     Indication: CHRONIC HEPATITIS B
     Dosage: 100 MG, QD
     Route: 065

REACTIONS (3)
  - Drug resistance [Unknown]
  - Hepatitis B [Unknown]
  - Drug ineffective [Unknown]
